FAERS Safety Report 6173810-0 (Version None)
Quarter: 2009Q2

REPORT INFORMATION
  Report Type: 
  Country: None (occurrence: None)
  Receive Date: 20090430
  Receipt Date: 20090427
  Transmission Date: 20091009
  Serious: Yes (Other)
  Sender: FDA-Public Use
  Company Number: US-BAYER-200912433NA

PATIENT
  Age: 45 Year
  Sex: Male
  Weight: 77 kg

DRUGS (4)
  1. LEVITRA [Suspect]
     Indication: ERECTILE DYSFUNCTION
     Dosage: UNIT DOSE: 20 MG
     Dates: start: 20090203
  2. KLONOPIN [Concomitant]
  3. TRAMADOL HCL [Concomitant]
  4. AMLODIPINE [Concomitant]

REACTIONS (6)
  - DIZZINESS [None]
  - FLUSHING [None]
  - HEADACHE [None]
  - PARAESTHESIA [None]
  - PHOTOPHOBIA [None]
  - VISUAL BRIGHTNESS [None]
